FAERS Safety Report 11395822 (Version 1)
Quarter: 2015Q3

REPORT INFORMATION
  Report Type: Spontaneous
  Country: US (occurrence: US)
  Receive Date: 20150819
  Receipt Date: 20150819
  Transmission Date: 20151125
  Serious: No
  Sender: FDA-Public Use
  Company Number: US-JNJFOC-20150600106

PATIENT
  Age: 20 Year
  Sex: Female
  Weight: 69.85 kg

DRUGS (3)
  1. INVEGA SUSTENNA [Suspect]
     Active Substance: PALIPERIDONE PALMITATE
     Indication: SCHIZOPHRENIA
     Route: 030
     Dates: end: 201410
  2. INVEGA SUSTENNA [Suspect]
     Active Substance: PALIPERIDONE PALMITATE
     Indication: SCHIZOPHRENIA
     Dosage: LOADING DOSE
     Route: 030
     Dates: start: 2013, end: 2013
  3. INVEGA SUSTENNA [Suspect]
     Active Substance: PALIPERIDONE PALMITATE
     Indication: SCHIZOPHRENIA
     Dosage: SECOND LOADING DOSE
     Route: 030

REACTIONS (5)
  - Hallucination, auditory [Unknown]
  - Drug ineffective [Unknown]
  - Depression [Unknown]
  - Drug dose omission [Unknown]
  - Anger [Unknown]

NARRATIVE: CASE EVENT DATE: 201410
